FAERS Safety Report 9467127 (Version 2)
Quarter: 2013Q3

REPORT INFORMATION
  Report Type: Spontaneous
  Country: GB (occurrence: GB)
  Receive Date: 20130820
  Receipt Date: 20130820
  Transmission Date: 20140515
  Serious: Yes (Other)
  Sender: FDA-Public Use
  Company Number: GB-B.I. PHARMACEUTICALS,INC./RIDGEFIELD-2012-UK-01487UK

PATIENT
  Sex: Female

DRUGS (10)
  1. DABIGATRAN [Suspect]
     Indication: CARDIOVERSION
     Dosage: 300 MG
     Route: 048
     Dates: start: 20120919, end: 20121005
  2. ZOPICLONE [Concomitant]
     Dosage: 3.75 MG
     Route: 048
  3. FLUOXETINE [Concomitant]
     Dosage: 20 MG
     Route: 048
  4. OXYMIL [Concomitant]
     Dosage: 40 MG
     Route: 048
  5. PREGABALIN [Concomitant]
     Dosage: 225 MG
     Route: 048
  6. OXYCONTIN [Concomitant]
     Dosage: 40 MG
     Route: 048
  7. SOTALOL [Concomitant]
     Dosage: 40 MG
  8. LANSOPRAZOLE [Concomitant]
     Dosage: 30 MG
  9. CYCLIZINE [Concomitant]
  10. TINZAPARIN HEPARIN [Concomitant]
     Dosage: INJECTION, 15,000UNITS
     Route: 058

REACTIONS (2)
  - Abortion spontaneous [Unknown]
  - Pruritus [Unknown]
